FAERS Safety Report 8378931-X (Version None)
Quarter: 2012Q2

REPORT INFORMATION
  Report Type: 
  Country: None (occurrence: None)
  Receive Date: 20120522
  Receipt Date: 20120522
  Transmission Date: 20120825
  Serious: Yes (Death)
  Sender: FDA-Public Use
  Company Number: None

PATIENT
  Sex: Male

DRUGS (1)
  1. ZITHROMAX [Suspect]
     Dosage: AZITHROMYCIN 250MG DAILY 047
     Dates: start: 20120419, end: 20120423

REACTIONS (1)
  - SUDDEN DEATH [None]
